FAERS Safety Report 13557538 (Version 3)
Quarter: 2020Q1

REPORT INFORMATION
  Report Type: Report from Study
  Country: FR (occurrence: FR)
  Receive Date: 20170518
  Receipt Date: 20200131
  Transmission Date: 20200409
  Serious: Yes (Other)
  Sender: FDA-Public Use
  Company Number: FR-EMD SERONO-8156553

PATIENT
  Age: 52 Year
  Sex: Male

DRUGS (5)
  1. REBIF [Suspect]
     Active Substance: INTERFERON BETA-1A
     Dosage: DOSE REDUCTION FOLLOWED BY DISCONTINUATION TILL FEB 2017
     Route: 058
     Dates: start: 201701, end: 201702
  2. REBIF [Suspect]
     Active Substance: INTERFERON BETA-1A
     Route: 058
     Dates: start: 201705
  3. REBIF [Suspect]
     Active Substance: INTERFERON BETA-1A
     Dosage: WAS TAKING REBIF 2 TIMES PER WEEK FROM ONE AND HALF YEAR
     Route: 058
  4. REBIF [Suspect]
     Active Substance: INTERFERON BETA-1A
     Indication: MULTIPLE SCLEROSIS
     Dosage: AUTO-INJECTING DEVICE: SYRINGES
     Route: 058
     Dates: start: 201509
  5. REBIF [Suspect]
     Active Substance: INTERFERON BETA-1A
     Route: 058
     Dates: start: 201703, end: 20170414

REACTIONS (8)
  - Leukopenia [Recovering/Resolving]
  - Tendon rupture [Recovering/Resolving]
  - Fatigue [Not Recovered/Not Resolved]
  - Product distribution issue [Unknown]
  - Neutropenia [Recovering/Resolving]
  - Alanine aminotransferase increased [Recovering/Resolving]
  - Aspartate aminotransferase increased [Recovering/Resolving]
  - Inappropriate schedule of product administration [Recovered/Resolved]

NARRATIVE: CASE EVENT DATE: 201612
